FAERS Safety Report 10179560 (Version 1)
Quarter: 2014Q2

REPORT INFORMATION
  Report Type: Spontaneous
  Country: GB (occurrence: GB)
  Receive Date: 20140519
  Receipt Date: 20140519
  Transmission Date: 20141212
  Serious: Yes (Other)
  Sender: FDA-Public Use
  Company Number: GB-WATSON-2014-09850

PATIENT
  Age: 87 Year
  Sex: Female
  Weight: 32 kg

DRUGS (4)
  1. BACLOFEN (UNKNOWN) [Suspect]
     Indication: MUSCULOSKELETAL STIFFNESS
     Dosage: 10 MG, BID
     Route: 048
     Dates: start: 20140410, end: 20140413
  2. FEXOFENADINE [Concomitant]
     Indication: PRODUCT USED FOR UNKNOWN INDICATION
     Dosage: UNK
     Route: 065
  3. FLUDROCORTISONE [Concomitant]
     Indication: PRODUCT USED FOR UNKNOWN INDICATION
     Dosage: UNK
     Route: 065
  4. OMEPRAZOLE [Concomitant]
     Indication: PRODUCT USED FOR UNKNOWN INDICATION
     Dosage: UNK
     Route: 065

REACTIONS (4)
  - Head titubation [Recovered/Resolved]
  - Dyskinesia [Recovered/Resolved]
  - Toxicity to various agents [Recovered/Resolved]
  - Idiosyncratic drug reaction [Recovered/Resolved]
